FAERS Safety Report 16311116 (Version 1)
Quarter: 2019Q2

REPORT INFORMATION
  Report Type: Report from Study
  Country: BD (occurrence: BD)
  Receive Date: 20190514
  Receipt Date: 20190514
  Transmission Date: 20190711
  Serious: Yes (Death, Other)
  Sender: FDA-Public Use
  Company Number: PHHY2019BD109151

PATIENT
  Age: 50 Year
  Sex: Male
  Weight: 65 kg

DRUGS (2)
  1. SANDIMMUN NEORAL [Suspect]
     Active Substance: CYCLOSPORINE
     Dosage: 50 MG, BID
     Route: 048
  2. SANDIMMUN NEORAL [Suspect]
     Active Substance: CYCLOSPORINE
     Indication: BONE MARROW FAILURE
     Dosage: 100 MG, TID
     Route: 048

REACTIONS (6)
  - Cardiopulmonary failure [Fatal]
  - Product use in unapproved indication [Unknown]
  - Gingival bleeding [Unknown]
  - Full blood count decreased [Unknown]
  - Haematochezia [Unknown]
  - Anaemia [Unknown]

NARRATIVE: CASE EVENT DATE: 20190504
